FAERS Safety Report 20917488 (Version 2)
Quarter: 2022Q3

REPORT INFORMATION
  Report Type: Report from Study
  Country: CA (occurrence: CA)
  Receive Date: 20220606
  Receipt Date: 20220804
  Transmission Date: 20221026
  Serious: Yes (Other)
  Sender: FDA-Public Use
  Company Number: CA-BRISTOL-MYERS SQUIBB COMPANY-2022-017011

PATIENT
  Age: 82 Year
  Sex: Female

DRUGS (2)
  1. ORENCIA [Suspect]
     Active Substance: ABATACEPT
     Indication: Rheumatoid arthritis
     Dosage: 4 WEEKS
     Route: 042
     Dates: start: 20160930
  2. ORENCIA [Suspect]
     Active Substance: ABATACEPT
     Route: 042

REACTIONS (6)
  - Chest injury [Unknown]
  - Inappropriate schedule of product administration [Recovered/Resolved]
  - Prescribed overdose [Not Recovered/Not Resolved]
  - Fall [Unknown]
  - Blood pressure systolic increased [Not Recovered/Not Resolved]
  - Heart rate increased [Recovered/Resolved]

NARRATIVE: CASE EVENT DATE: 20220101
